FAERS Safety Report 18409208 (Version 1)
Quarter: 2020Q4

REPORT INFORMATION
  Report Type: Report from Study
  Country: US (occurrence: US)
  Receive Date: 20201021
  Receipt Date: 20201021
  Transmission Date: 20210114
  Serious: Yes (Life-Threatening)
  Sender: FDA-Public Use
  Company Number: NVSC2020US157016

PATIENT
  Age: 55 Year
  Sex: Female

DRUGS (7)
  1. BLINDED NO TREATMENT RECEIVED [Suspect]
     Active Substance: INVESTIGATIONAL PRODUCT
     Indication: COVID-19
     Dosage: CODE NOT BROKEN
     Route: 048
     Dates: start: 20200529, end: 20200602
  2. BLINDED INC424 [Suspect]
     Active Substance: RUXOLITINIB
     Indication: COVID-19
     Dosage: CODE NOT BROKEN
     Route: 048
     Dates: start: 20200529, end: 20200602
  3. BLINDED INC424 [Suspect]
     Active Substance: RUXOLITINIB
     Dosage: CODE NOT BROKEN
     Route: 048
     Dates: start: 20200602, end: 20200611
  4. BLINDED NO TREATMENT RECEIVED [Suspect]
     Active Substance: INVESTIGATIONAL PRODUCT
     Dosage: CODE NOT BROKEN
     Route: 048
     Dates: start: 20200602, end: 20200611
  5. DEXAMETHASONE. [Suspect]
     Active Substance: DEXAMETHASONE
     Indication: MACROGLOSSIA
     Dosage: 4 MG, Q6H
     Route: 042
     Dates: start: 20200609, end: 20200614
  6. PLACEBO [Suspect]
     Active Substance: UNSPECIFIED INGREDIENT
     Indication: COVID-19
     Dosage: CODE NOT BROKEN
     Route: 048
     Dates: start: 20200529, end: 20200602
  7. PLACEBO [Suspect]
     Active Substance: UNSPECIFIED INGREDIENT
     Dosage: CODE NOT BROKEN
     Route: 048
     Dates: start: 20200602, end: 20200611

REACTIONS (4)
  - Strongyloidiasis [Recovered/Resolved]
  - Sepsis [Recovered/Resolved]
  - Hypoxia [Recovered/Resolved]
  - Acidosis [Recovered/Resolved]

NARRATIVE: CASE EVENT DATE: 20200530
